FAERS Safety Report 17313178 (Version 1)
Quarter: 2020Q1

REPORT INFORMATION
  Report Type: Spontaneous
  Country: US (occurrence: US)
  Receive Date: 20200124
  Receipt Date: 20200124
  Transmission Date: 20200409
  Serious: Yes (Death, Other)
  Sender: FDA-Public Use
  Company Number: US-US WORLDMEDS, LLC-USW202001-000082

PATIENT
  Age: 77 Year
  Sex: Female
  Weight: 47.21 kg

DRUGS (1)
  1. APOKYN [Suspect]
     Active Substance: APOMORPHINE HYDROCHLORIDE
     Indication: PARKINSON^S DISEASE
     Dosage: 0.6 ML/DOSE UNDER THE SKIN, NOT TO EXCEED 5 DOSES/24HR, 3ML CARTRIDGE 1 EA CART
     Route: 058

REACTIONS (2)
  - Dysphagia [Unknown]
  - Parkinson^s disease [Fatal]

NARRATIVE: CASE EVENT DATE: 20200116
